FAERS Safety Report 24421391 (Version 2)
Quarter: 2024Q4

REPORT INFORMATION
  Report Type: Spontaneous
  Country: US (occurrence: US)
  Receive Date: 20241010
  Receipt Date: 20241227
  Transmission Date: 20250115
  Serious: No
  Sender: PHARMING GROUP
  Company Number: US-PHARMING-PHAUS2024000852

PATIENT

DRUGS (6)
  1. RUCONEST [Suspect]
     Active Substance: CONESTAT ALFA
     Indication: Hereditary angioedema
     Dosage: 4090 IU, AS NEEDED
     Route: 042
     Dates: start: 202404
  2. RUCONEST [Suspect]
     Active Substance: CONESTAT ALFA
     Indication: Hereditary angioedema
     Dosage: 4090 IU, AS NEEDED
     Route: 042
     Dates: start: 202409
  3. RUCONEST [Suspect]
     Active Substance: CONESTAT ALFA
     Dosage: 4090 IU, AS NEEDED
     Route: 042
     Dates: start: 202409
  4. BENADRYL [Concomitant]
     Active Substance: DIPHENHYDRAMINE HYDROCHLORIDE
     Indication: Hereditary angioedema
  5. PREDNISONE [Concomitant]
     Active Substance: PREDNISONE
     Indication: Hereditary angioedema
     Dosage: UNK
  6. EPINEPHRINE [Concomitant]
     Active Substance: EPINEPHRINE
     Indication: Product used for unknown indication

REACTIONS (2)
  - Weight fluctuation [Unknown]
  - Condition aggravated [Unknown]
